FAERS Safety Report 9789603 (Version 2)
Quarter: 2014Q1

REPORT INFORMATION
  Report Type: Report from Study
  Country: US (occurrence: US)
  Receive Date: 20131231
  Receipt Date: 20140122
  Transmission Date: 20141002
  Serious: Yes (Hospitalization)
  Sender: FDA-Public Use
  Company Number: US-BRISTOL-MYERS SQUIBB COMPANY-19937366

PATIENT
  Age: 42 Year
  Sex: Female

DRUGS (13)
  1. CETUXIMAB [Suspect]
     Indication: THYMOMA
     Dosage: 4OCT13,11OCT13,18OCT13, 25OCT13, 01NOV13:390 MG
     Route: 042
     Dates: start: 20130927
  2. CISPLATIN [Suspect]
     Indication: THYMOMA
     Route: 042
     Dates: start: 20131025
  3. CYCLOPHOSPHAMIDE [Suspect]
     Indication: THYMOMA
     Route: 042
     Dates: start: 20131025
  4. DOXORUBICIN [Suspect]
     Indication: THYMOMA
     Route: 042
     Dates: start: 20131025
  5. ALCLOMETASONE DIPROPIONATE [Concomitant]
     Dates: start: 20131005
  6. CETIRIZINE [Concomitant]
     Dates: start: 20130822, end: 20131102
  7. CHOLECALCIFEROL [Concomitant]
     Dates: start: 20131005
  8. DEXAMETHASONE [Concomitant]
     Dates: start: 20131019
  9. DOXYCYCLINE HYCLATE [Concomitant]
  10. ENTECAVIR [Concomitant]
     Dates: start: 20130823
  11. GUAIFENESIN + CODEINE [Concomitant]
     Dates: start: 20131005
  12. LORATADINE [Concomitant]
     Dates: start: 20130822, end: 20130928
  13. ONDANSETRON [Concomitant]
     Dates: start: 20131019

REACTIONS (2)
  - Febrile neutropenia [Recovered/Resolved]
  - White blood cell count decreased [Recovered/Resolved]
